FAERS Safety Report 15844458 (Version 6)
Quarter: 2019Q4

REPORT INFORMATION
  Report Type: Spontaneous
  Country: US (occurrence: US)
  Receive Date: 20190118
  Receipt Date: 20191210
  Transmission Date: 20200122
  Serious: Yes (Hospitalization)
  Sender: FDA-Public Use
  Company Number: US-ACTELION-A-US2019-184892

PATIENT
  Age: 10 Year
  Sex: Female
  Weight: 19.5 kg

DRUGS (18)
  1. CYPROHEPTADINE. [Concomitant]
     Active Substance: CYPROHEPTADINE
     Dosage: 2 MG, BID
     Dates: start: 20190603
  2. PREDNISONE. [Concomitant]
     Active Substance: PREDNISONE
     Dosage: 5 MG, QD
     Dates: start: 20130704
  3. MELATONIN [Concomitant]
     Active Substance: MELATONIN
     Dosage: 5 MG, QD
  4. TRACLEER [Suspect]
     Active Substance: BOSENTAN
     Indication: PULMONARY HYPERTENSION
  5. OMEPRAZOLE. [Concomitant]
     Active Substance: OMEPRAZOLE
     Dosage: 20 MG, QD
     Dates: start: 20190725
  6. MIRALAX [Concomitant]
     Active Substance: POLYETHYLENE GLYCOL 3350
     Dosage: UNK, PRN
  7. CEFTAZIDIME. [Suspect]
     Active Substance: CEFTAZIDIME
     Indication: INFECTION
     Dosage: 2 G, TID
     Route: 065
     Dates: start: 20190809, end: 201908
  8. TRACLEER [Suspect]
     Active Substance: BOSENTAN
     Indication: MORPHOEA
     Dosage: 62.5 MG, BID
     Route: 048
     Dates: start: 20170125
  9. SILDENAFIL. [Concomitant]
     Active Substance: SILDENAFIL
     Dosage: 20 MG, TID
     Dates: start: 20160527
  10. GENTAMICIN. [Concomitant]
     Active Substance: GENTAMICIN
     Dosage: UNK UNK, PRN
     Route: 061
  11. ACETAMINOPHEN. [Concomitant]
     Active Substance: ACETAMINOPHEN
     Dosage: UNK, PRN
  12. GABAPENTIN. [Concomitant]
     Active Substance: GABAPENTIN
     Dosage: 100 MG, BID
     Dates: start: 20171106
  13. IMATINIB. [Concomitant]
     Active Substance: IMATINIB MESYLATE
     Dosage: 100 MG, QD
     Dates: start: 20181018
  14. LOSARTAN. [Concomitant]
     Active Substance: LOSARTAN
     Dosage: 25 MG, QD
     Dates: start: 20190801
  15. MORPHINE [Concomitant]
     Active Substance: MORPHINE
     Dosage: 45 MG, BID
     Dates: start: 20140805
  16. ALBUTEROL. [Concomitant]
     Active Substance: ALBUTEROL
     Dosage: UNK, PRN
  17. OXYCODONE [Concomitant]
     Active Substance: OXYCODONE
     Dosage: UNK, PRN
  18. MUPIROCIN. [Concomitant]
     Active Substance: MUPIROCIN
     Dosage: UNK, PRN

REACTIONS (7)
  - Pyrexia [Recovered/Resolved]
  - Hospitalisation [Unknown]
  - Liver function test increased [Recovered/Resolved]
  - Aspartate aminotransferase increased [Recovered/Resolved]
  - Wound [Unknown]
  - Cytopenia [Recovered/Resolved]
  - Alanine aminotransferase increased [Recovered/Resolved]

NARRATIVE: CASE EVENT DATE: 20190801
